FAERS Safety Report 13765145 (Version 1)
Quarter: 2017Q3

REPORT INFORMATION
  Report Type: Spontaneous
  Country: IT (occurrence: IT)
  Receive Date: 20170718
  Receipt Date: 20170718
  Transmission Date: 20171127
  Serious: Yes (Other)
  Sender: FDA-Public Use
  Company Number: IT-PFIZER INC-2298573

PATIENT
  Age: 53 Year
  Sex: Male

DRUGS (1)
  1. DIAZEPAM. [Suspect]
     Active Substance: DIAZEPAM
     Indication: SEDATIVE THERAPY
     Dosage: UNK
     Route: 042
     Dates: start: 20131120, end: 20131120

REACTIONS (3)
  - Venous thrombosis [Unknown]
  - Pain [Unknown]
  - Implant site swelling [Unknown]

NARRATIVE: CASE EVENT DATE: 20131120
